FAERS Safety Report 17431570 (Version 5)
Quarter: 2021Q1

REPORT INFORMATION
  Report Type: Spontaneous
  Country: GB (occurrence: GB)
  Receive Date: 20200218
  Receipt Date: 20210209
  Transmission Date: 20210419
  Serious: Yes (Hospitalization, Disabling, Other)
  Sender: FDA-Public Use
  Company Number: GB-MYLANLABS-2020M1017639

PATIENT
  Age: 22 Year
  Sex: Male

DRUGS (33)
  1. CEFTRIAXONE. [Suspect]
     Active Substance: CEFTRIAXONE
     Indication: EVIDENCE BASED TREATMENT
     Dosage: UNK
     Route: 042
  2. ACYCLOVIR                          /00587301/ [Suspect]
     Active Substance: ACYCLOVIR
     Indication: EVIDENCE BASED TREATMENT
     Dosage: UNK
     Route: 065
  3. FENTANYL. [Suspect]
     Active Substance: FENTANYL
     Indication: STATUS EPILEPTICUS
     Dosage: 300 MICROGRAM/KILOGRAM (UP TO 300UG/KG/H)
     Route: 040
  4. KETAMINE [Suspect]
     Active Substance: KETAMINE
     Indication: STATUS EPILEPTICUS
     Dosage: TITRATED UP TO 6 MG/KG/HR
     Route: 065
  5. PHENOBARBITONE                     /00023201/ [Suspect]
     Active Substance: PHENOBARBITAL
     Indication: STATUS EPILEPTICUS
     Dosage: UNK
     Route: 065
  6. REMIFENTANIL [Suspect]
     Active Substance: REMIFENTANIL
     Indication: SEDATION
     Dosage: UNK
     Route: 065
  7. LEVETIRACETAM. [Concomitant]
     Active Substance: LEVETIRACETAM
     Indication: EPILEPSY
     Dosage: UNK
     Route: 065
  8. PHENYTOIN. [Concomitant]
     Active Substance: PHENYTOIN
     Indication: STATUS EPILEPTICUS
  9. KETAMINE [Suspect]
     Active Substance: KETAMINE
     Dosage: 6 MILLIGRAM/KILOGRAM, 1 HOUR
  10. THIOPENTAL SODIUM. [Suspect]
     Active Substance: THIOPENTAL SODIUM
     Indication: EPILEPSY
  11. PROPOFOL. [Suspect]
     Active Substance: PROPOFOL
     Indication: SEDATION
  12. PROPOFOL. [Suspect]
     Active Substance: PROPOFOL
     Indication: STATUS EPILEPTICUS
     Dosage: 5 MILLIGRAM/KILOGRAM
     Route: 065
  13. PERAMPANEL [Concomitant]
     Active Substance: PERAMPANEL
     Indication: STATUS EPILEPTICUS
     Dosage: UP?TITRATED TO 14 MG DAILY
     Route: 065
  14. PERAMPANEL [Concomitant]
     Active Substance: PERAMPANEL
     Indication: EPILEPSY
     Dosage: ADDED ON DAY 142 SLOWLY UP?TITRATED
  15. SODIUM VALPROATE [Concomitant]
     Active Substance: VALPROATE SODIUM
     Indication: STATUS EPILEPTICUS
  16. THIOPENTAL SODIUM. [Suspect]
     Active Substance: THIOPENTAL SODIUM
     Indication: STATUS EPILEPTICUS
     Dosage: 5 MILLIGRAM
     Route: 065
  17. LEVETIRACETAM. [Concomitant]
     Active Substance: LEVETIRACETAM
     Indication: STATUS EPILEPTICUS
  18. CLONAZEPAM. [Concomitant]
     Active Substance: CLONAZEPAM
     Indication: STATUS EPILEPTICUS
     Dosage: UNK
     Route: 065
  19. TOPIRAMATE. [Concomitant]
     Active Substance: TOPIRAMATE
     Indication: STATUS EPILEPTICUS
     Dosage: UNK
     Route: 042
  20. CLOBAZAM. [Concomitant]
     Active Substance: CLOBAZAM
     Indication: STATUS EPILEPTICUS
     Dosage: UNK
     Route: 065
  21. FENTANYL. [Suspect]
     Active Substance: FENTANYL
     Indication: SEDATION
  22. KETAMINE [Suspect]
     Active Substance: KETAMINE
     Dosage: 6 MILLIGRAM/KILOGRAM, HS (TITRATED UP TO 6 MG/KG/HR)
  23. LORAZEPAM. [Concomitant]
     Active Substance: LORAZEPAM
     Indication: EPILEPSY
     Dosage: UNK
     Route: 065
  24. PROPOFOL. [Suspect]
     Active Substance: PROPOFOL
     Indication: STATUS EPILEPTICUS
     Dosage: 5 MILLIGRAM/KILOGRAM (UPTO 5 MG/KG/HR)
     Route: 040
  25. ACYCLOVIR                          /00587301/ [Suspect]
     Active Substance: ACYCLOVIR
     Indication: EVIDENCE BASED TREATMENT
     Dosage: UNK
     Route: 042
  26. TOPIRAMATE. [Suspect]
     Active Substance: TOPIRAMATE
     Indication: STATUS EPILEPTICUS
     Dosage: UNK
     Route: 065
  27. LORAZEPAM. [Concomitant]
     Active Substance: LORAZEPAM
     Indication: PAROXYSMAL SYMPATHETIC HYPERACTIVITY
  28. PHENYTOIN. [Concomitant]
     Active Substance: PHENYTOIN
     Indication: EPILEPSY
     Dosage: UNK
     Route: 065
  29. THIOPENTAL SODIUM. [Suspect]
     Active Substance: THIOPENTAL SODIUM
     Indication: STATUS EPILEPTICUS
     Dosage: UP TO 7 MG/KG/HR
     Route: 042
  30. MIDAZOLAM. [Suspect]
     Active Substance: MIDAZOLAM
     Indication: STATUS EPILEPTICUS
     Dosage: 20 MILLIGRAM, QH (UP TO 20 MG/HR)
     Route: 065
  31. LACOSAMIDE. [Concomitant]
     Active Substance: LACOSAMIDE
     Indication: STATUS EPILEPTICUS
     Dosage: UNKNOWN
     Route: 065
  32. METHYLPREDNISOLONE. [Concomitant]
     Active Substance: METHYLPREDNISOLONE
     Indication: STATUS EPILEPTICUS
     Dosage: 1 GRAM, QD (TWO SEPARATE PULSES IV METHYLPREDNISOLONE (FOR 5 DAYS)
     Route: 042
  33. SODIUM VALPROATE [Concomitant]
     Active Substance: VALPROATE SODIUM
     Indication: EPILEPSY
     Dosage: UNK

REACTIONS (33)
  - Deep vein thrombosis [Unknown]
  - Hypotension [Unknown]
  - Haematuria traumatic [Unknown]
  - Intensive care unit acquired weakness [Unknown]
  - Partial seizures [Not Recovered/Not Resolved]
  - Ileus [Unknown]
  - Fungal infection [Unknown]
  - Hypernatraemia [Unknown]
  - Memory impairment [Unknown]
  - Weight decreased [Unknown]
  - Coagulopathy [Unknown]
  - Hypercalcaemia [Unknown]
  - Abdominal compartment syndrome [Unknown]
  - Liver function test abnormal [Unknown]
  - Anaemia [Unknown]
  - Drug hypersensitivity [Unknown]
  - Tachycardia [Unknown]
  - Behaviour disorder [Unknown]
  - Decubitus ulcer [Unknown]
  - Haematuria [Unknown]
  - Cognitive disorder [Unknown]
  - Pyrexia [Unknown]
  - Intentional product use issue [Unknown]
  - Muscle contracture [Unknown]
  - Rash [Unknown]
  - Hypothyroidism [Unknown]
  - Acute lung injury [Unknown]
  - Thrombophlebitis [Unknown]
  - Acute kidney injury [Unknown]
  - Infection [Unknown]
  - Bradycardia [Unknown]
  - Product use in unapproved indication [Unknown]
  - Off label use [Unknown]
